FAERS Safety Report 8798397 (Version 1)
Quarter: 2012Q4

REPORT INFORMATION
  Report Type: 
  Country: US (occurrence: US)
  Receive Date: 20120920
  Receipt Date: 20120920
  Transmission Date: 20130627
  Serious: Yes (Other)
  Sender: FDA-Public Use
  Company Number: US-BAYER-2012-096520

PATIENT
  Age: 22 Year
  Sex: Female

DRUGS (1)
  1. MIRENA [Suspect]
     Indication: PRODUCT USED FOR UNKNOWN INDICATION
     Dosage: 20 ?g/d, CONT
     Route: 015
     Dates: start: 20120906, end: 20120906

REACTIONS (3)
  - Post procedural haemorrhage [Recovered/Resolved]
  - Discomfort [Recovered/Resolved]
  - Device difficult to use [Recovered/Resolved]
